FAERS Safety Report 8925650 (Version 2)
Quarter: 2012Q4

REPORT INFORMATION
  Report Type: 
  Country: JP (occurrence: JP)
  Receive Date: 20121126
  Receipt Date: 20121213
  Transmission Date: 20130627
  Serious: Yes (Hospitalization, Other)
  Sender: FDA-Public Use
  Company Number: JP-BRISTOL-MYERS SQUIBB COMPANY-17079724

PATIENT
  Age: 44 Year
  Sex: Female

DRUGS (4)
  1. AVAPRO [Suspect]
     Indication: HYPERTENSION
     Route: 048
     Dates: start: 20120913, end: 20121018
  2. METGLUCO [Suspect]
     Indication: TYPE 2 DIABETES MELLITUS
     Route: 048
     Dates: start: 20090910
  3. SITAGLIPTIN PHOSPHATE [Suspect]
     Indication: TYPE 2 DIABETES MELLITUS
     Dosage: Sitagliptin phosphate hydrate
     Route: 048
     Dates: start: 20110512
  4. ADALAT-CR [Concomitant]
     Indication: HYPERTENSION
     Route: 048
     Dates: start: 20120512

REACTIONS (2)
  - Erythema nodosum [Recovering/Resolving]
  - Blood glucose increased [Unknown]
